FAERS Safety Report 8221662-7 (Version None)
Quarter: 2012Q1

REPORT INFORMATION
  Report Type: 
  Country: None (occurrence: None)
  Receive Date: 20120316
  Receipt Date: 20120312
  Transmission Date: 20120608
  Serious: Yes (Life-Threatening, Hospitalization, Other)
  Sender: FDA-Public Use
  Company Number: ADR-2011-11667

PATIENT
  Sex: Female

DRUGS (2)
  1. BACLOFEN [Suspect]
     Indication: SPINAL CORD INJURY
  2. BACLOFEN [Suspect]
     Indication: MUSCLE SPASTICITY

REACTIONS (7)
  - DYSARTHRIA [None]
  - URINARY TRACT INFECTION [None]
  - BRAIN OEDEMA [None]
  - COGNITIVE DISORDER [None]
  - CONVULSION [None]
  - MENTAL STATUS CHANGES [None]
  - MENINGITIS BACTERIAL [None]
